FAERS Safety Report 5694825-2 (Version None)
Quarter: 2008Q2

REPORT INFORMATION
  Report Type: 
  Country: None (occurrence: None)
  Receive Date: 20080404
  Receipt Date: 20080327
  Transmission Date: 20081010
  Serious: Yes (Other)
  Sender: FDA-Public Use
  Company Number: HQWYE006927FEB06

PATIENT
  Sex: Female
  Weight: 56.75 kg

DRUGS (4)
  1. PREMARIN [Suspect]
     Indication: HORMONE REPLACEMENT THERAPY
     Dosage: UNKNOWN
     Route: 048
     Dates: start: 19820101, end: 20030101
  2. VIVELLE [Suspect]
     Dosage: UNKNOWN
     Route: 065
  3. PROMETRIUM [Suspect]
     Dosage: UNKNOWN
     Route: 065
  4. ESTRADERM [Suspect]
     Dosage: UNKNOWN
     Route: 065

REACTIONS (3)
  - BENIGN BREAST NEOPLASM [None]
  - BREAST CANCER METASTATIC [None]
  - SYSTEMIC LUPUS ERYTHEMATOSUS [None]
